FAERS Safety Report 26066811 (Version 2)
Quarter: 2025Q4

REPORT INFORMATION
  Report Type: Spontaneous
  Country: CA (occurrence: CA)
  Receive Date: 20251119
  Receipt Date: 20251223
  Transmission Date: 20260119
  Serious: Yes (Other)
  Sender: BRISTOL-MYERS SQUIBB COMPANY
  Company Number: CA-BRISTOL-MYERS SQUIBB COMPANY-2025-154898

PATIENT
  Sex: Female

DRUGS (192)
  1. TRIAMCINOLONE ACETONIDE [Suspect]
     Active Substance: TRIAMCINOLONE ACETONIDE
     Indication: Product used for unknown indication
     Route: 014
  2. ORENCIA [Suspect]
     Active Substance: ABATACEPT
     Indication: Product used for unknown indication
  3. ORENCIA [Suspect]
     Active Substance: ABATACEPT
  4. ORENCIA [Suspect]
     Active Substance: ABATACEPT
  5. ORENCIA [Suspect]
     Active Substance: ABATACEPT
     Indication: Product used for unknown indication
     Route: 042
  6. ORENCIA [Suspect]
     Active Substance: ABATACEPT
     Route: 042
  7. ORENCIA [Suspect]
     Active Substance: ABATACEPT
     Route: 042
  8. ORENCIA [Suspect]
     Active Substance: ABATACEPT
     Route: 042
  9. ORENCIA [Suspect]
     Active Substance: ABATACEPT
     Indication: Product used for unknown indication
     Route: 058
  10. ORENCIA [Suspect]
     Active Substance: ABATACEPT
     Route: 058
  11. ORENCIA [Suspect]
     Active Substance: ABATACEPT
     Route: 058
  12. ORENCIA [Suspect]
     Active Substance: ABATACEPT
     Indication: Product used for unknown indication
     Route: 053
  13. ADALIMUMAB [Concomitant]
     Active Substance: ADALIMUMAB
     Indication: Product used for unknown indication
     Route: 058
  14. ADALIMUMAB [Concomitant]
     Active Substance: ADALIMUMAB
     Route: 048
  15. ADALIMUMAB [Concomitant]
     Active Substance: ADALIMUMAB
     Dosage: SOLUTION SUBCUTANEOUS
     Route: 040
  16. APREMILAST [Concomitant]
     Active Substance: APREMILAST
     Indication: Product used for unknown indication
  17. DICLOFENAC [Concomitant]
     Active Substance: DICLOFENAC
     Indication: Product used for unknown indication
  18. DICLOFENAC [Concomitant]
     Active Substance: DICLOFENAC
  19. ENBREL [Concomitant]
     Active Substance: ETANERCEPT
     Indication: Product used for unknown indication
     Route: 058
  20. ENBREL [Concomitant]
     Active Substance: ETANERCEPT
     Route: 058
  21. ENBREL [Concomitant]
     Active Substance: ETANERCEPT
     Route: 058
  22. HYDROCORTISONE SODIUM SUCCINATE [Concomitant]
     Active Substance: HYDROCORTISONE SODIUM SUCCINATE
     Indication: Product used for unknown indication
     Dosage: POWDER FOR SOLUTION
  23. HYDROCORTISONE SODIUM SUCCINATE [Concomitant]
     Active Substance: HYDROCORTISONE SODIUM SUCCINATE
     Route: 048
  24. INFLIXIMAB [Concomitant]
     Active Substance: INFLIXIMAB
     Indication: Product used for unknown indication
  25. INFLIXIMAB [Concomitant]
     Active Substance: INFLIXIMAB
     Route: 040
  26. METHOTREXATE SODIUM [Concomitant]
     Active Substance: METHOTREXATE SODIUM
     Indication: Product used for unknown indication
     Route: 013
  27. METHOTREXATE SODIUM [Concomitant]
     Active Substance: METHOTREXATE SODIUM
     Route: 048
  28. METHOTREXATE SODIUM [Concomitant]
     Active Substance: METHOTREXATE SODIUM
     Route: 048
  29. METHOTREXATE SODIUM [Concomitant]
     Active Substance: METHOTREXATE SODIUM
     Route: 048
  30. METHOTREXATE SODIUM [Concomitant]
     Active Substance: METHOTREXATE SODIUM
     Route: 013
  31. METHOTREXATE SODIUM [Concomitant]
     Active Substance: METHOTREXATE SODIUM
     Route: 048
  32. METHOTREXATE SODIUM [Concomitant]
     Active Substance: METHOTREXATE SODIUM
     Route: 048
  33. METHOTREXATE SODIUM [Concomitant]
     Active Substance: METHOTREXATE SODIUM
     Route: 058
  34. METHOTREXATE SODIUM [Concomitant]
     Active Substance: METHOTREXATE SODIUM
  35. METHOTREXATE SODIUM [Concomitant]
     Active Substance: METHOTREXATE SODIUM
     Route: 048
  36. METHOTREXATE SODIUM [Concomitant]
     Active Substance: METHOTREXATE SODIUM
  37. METHOTREXATE SODIUM [Concomitant]
     Active Substance: METHOTREXATE SODIUM
     Route: 048
  38. METHOTREXATE SODIUM [Concomitant]
     Active Substance: METHOTREXATE SODIUM
     Route: 058
  39. METHOTREXATE SODIUM [Concomitant]
     Active Substance: METHOTREXATE SODIUM
  40. METHOTREXATE SODIUM [Concomitant]
     Active Substance: METHOTREXATE SODIUM
     Route: 048
  41. METHOTREXATE SODIUM [Concomitant]
     Active Substance: METHOTREXATE SODIUM
     Route: 048
  42. METHOTREXATE SODIUM [Concomitant]
     Active Substance: METHOTREXATE SODIUM
     Route: 016
  43. METHYLPREDNISOLONE SODIUM SUCCINATE [Concomitant]
     Active Substance: METHYLPREDNISOLONE SODIUM SUCCINATE
     Indication: Product used for unknown indication
     Route: 048
  44. OTEZLA [Concomitant]
     Active Substance: APREMILAST
     Indication: Product used for unknown indication
     Route: 048
  45. OTEZLA [Concomitant]
     Active Substance: APREMILAST
  46. OTEZLA [Concomitant]
     Active Substance: APREMILAST
  47. OTEZLA [Concomitant]
     Active Substance: APREMILAST
  48. OTEZLA [Concomitant]
     Active Substance: APREMILAST
     Route: 048
  49. OXYCODONE HYDROCHLORIDE [Concomitant]
     Active Substance: OXYCODONE HYDROCHLORIDE
     Indication: Product used for unknown indication
  50. PHTHALYLSULFATHIAZOLE [Concomitant]
     Active Substance: PHTHALYLSULFATHIAZOLE
     Indication: Product used for unknown indication
     Route: 048
  51. PHTHALYLSULFATHIAZOLE [Concomitant]
     Active Substance: PHTHALYLSULFATHIAZOLE
     Route: 048
  52. PHTHALYLSULFATHIAZOLE [Concomitant]
     Active Substance: PHTHALYLSULFATHIAZOLE
     Route: 058
  53. PHTHALYLSULFATHIAZOLE [Concomitant]
     Active Substance: PHTHALYLSULFATHIAZOLE
     Route: 048
  54. PHTHALYLSULFATHIAZOLE [Concomitant]
     Active Substance: PHTHALYLSULFATHIAZOLE
     Route: 016
  55. PHTHALYLSULFATHIAZOLE [Concomitant]
     Active Substance: PHTHALYLSULFATHIAZOLE
  56. PHTHALYLSULFATHIAZOLE [Concomitant]
     Active Substance: PHTHALYLSULFATHIAZOLE
  57. PREDNISONE [Concomitant]
     Active Substance: PREDNISONE
     Indication: Product used for unknown indication
  58. PREDNISONE [Concomitant]
     Active Substance: PREDNISONE
  59. PREDNISONE [Concomitant]
     Active Substance: PREDNISONE
     Route: 048
  60. PREDNISONE [Concomitant]
     Active Substance: PREDNISONE
     Route: 048
  61. PREDNISONE [Concomitant]
     Active Substance: PREDNISONE
     Route: 048
  62. PREDNISONE [Concomitant]
     Active Substance: PREDNISONE
     Route: 048
  63. PSEUDOEPHEDRINE HYDROCHLORIDE [Concomitant]
     Active Substance: PSEUDOEPHEDRINE HYDROCHLORIDE
     Indication: Product used for unknown indication
  64. QUETIAPINE FUMARATE [Concomitant]
     Active Substance: QUETIAPINE FUMARATE
     Indication: Product used for unknown indication
  65. ACETAMINOPHEN\CODEINE PHOSPHATE\METHOCARBAMOL [Concomitant]
     Active Substance: ACETAMINOPHEN\CODEINE PHOSPHATE\METHOCARBAMOL
     Indication: Product used for unknown indication
  66. ACETAMINOPHEN\CODEINE PHOSPHATE\METHOCARBAMOL [Concomitant]
     Active Substance: ACETAMINOPHEN\CODEINE PHOSPHATE\METHOCARBAMOL
  67. DIETARY SUPPLEMENT\HERBALS [Concomitant]
     Active Substance: DIETARY SUPPLEMENT\HERBALS
     Indication: Product used for unknown indication
     Route: 048
  68. SALICYLIC ACID [Concomitant]
     Active Substance: SALICYLIC ACID
     Indication: Product used for unknown indication
  69. AMINOSALICYLATE SODIUM [Concomitant]
     Active Substance: AMINOSALICYLATE SODIUM
     Indication: Product used for unknown indication
  70. SULFAMETHOXAZOLE AND TRIMETHOPRIM [Concomitant]
     Active Substance: SULFAMETHOXAZOLE\TRIMETHOPRIM
     Indication: Product used for unknown indication
     Route: 067
  71. SULFASALAZINE [Concomitant]
     Active Substance: SULFASALAZINE
     Indication: Product used for unknown indication
     Route: 058
  72. SULFASALAZINE [Concomitant]
     Active Substance: SULFASALAZINE
     Route: 058
  73. SULFASALAZINE [Concomitant]
     Active Substance: SULFASALAZINE
     Route: 058
  74. SULFASALAZINE [Concomitant]
     Active Substance: SULFASALAZINE
     Route: 048
  75. SULFASALAZINE [Concomitant]
     Active Substance: SULFASALAZINE
     Route: 058
  76. SULFASALAZINE [Concomitant]
     Active Substance: SULFASALAZINE
     Route: 058
  77. SULFASALAZINE [Concomitant]
     Active Substance: SULFASALAZINE
     Route: 058
  78. THYMOL [Concomitant]
     Active Substance: THYMOL
     Indication: Product used for unknown indication
     Route: 048
  79. THYMOL [Concomitant]
     Active Substance: THYMOL
     Route: 048
  80. TOCILIZUMAB [Concomitant]
     Active Substance: TOCILIZUMAB
     Indication: Product used for unknown indication
     Route: 016
  81. TOCILIZUMAB [Concomitant]
     Active Substance: TOCILIZUMAB
     Route: 040
  82. TOCILIZUMAB [Concomitant]
     Active Substance: TOCILIZUMAB
     Route: 058
  83. TOCILIZUMAB [Concomitant]
     Active Substance: TOCILIZUMAB
     Route: 040
  84. TOCILIZUMAB [Concomitant]
     Active Substance: TOCILIZUMAB
     Route: 040
  85. TOCILIZUMAB [Concomitant]
     Active Substance: TOCILIZUMAB
  86. TOCILIZUMAB [Concomitant]
     Active Substance: TOCILIZUMAB
     Route: 058
  87. TOCILIZUMAB [Concomitant]
     Active Substance: TOCILIZUMAB
     Route: 040
  88. TOCILIZUMAB [Concomitant]
     Active Substance: TOCILIZUMAB
     Route: 058
  89. TOCILIZUMAB [Concomitant]
     Active Substance: TOCILIZUMAB
     Route: 048
  90. TOCILIZUMAB [Concomitant]
     Active Substance: TOCILIZUMAB
     Route: 058
  91. TOCILIZUMAB [Concomitant]
     Active Substance: TOCILIZUMAB
     Route: 016
  92. TOFACITINIB CITRATE [Concomitant]
     Active Substance: TOFACITINIB CITRATE
     Indication: Product used for unknown indication
  93. TRICLOSAN [Concomitant]
     Active Substance: TRICLOSAN
     Indication: Product used for unknown indication
  94. TYROTHRICIN [Concomitant]
     Active Substance: TYROTHRICIN
     Indication: Product used for unknown indication
     Route: 048
  95. TYROTHRICIN [Concomitant]
     Active Substance: TYROTHRICIN
     Route: 048
  96. VITAMIN D3 [Concomitant]
     Active Substance: CHOLECALCIFEROL
     Indication: Product used for unknown indication
  97. VITAMIN D3 [Concomitant]
     Active Substance: CHOLECALCIFEROL
     Route: 058
  98. VITAMIN D3 [Concomitant]
     Active Substance: CHOLECALCIFEROL
     Route: 016
  99. XELJANZ [Concomitant]
     Active Substance: TOFACITINIB CITRATE
     Indication: Product used for unknown indication
     Route: 048
  100. XELJANZ [Concomitant]
     Active Substance: TOFACITINIB CITRATE
  101. XELJANZ [Concomitant]
     Active Substance: TOFACITINIB CITRATE
     Route: 048
  102. TRAMADOL HYDROCHLORIDE [Concomitant]
     Active Substance: TRAMADOL HYDROCHLORIDE
     Indication: Product used for unknown indication
  103. ACETAMINOPHEN [Concomitant]
     Active Substance: ACETAMINOPHEN
     Indication: Product used for unknown indication
  104. ACETAMINOPHEN [Concomitant]
     Active Substance: ACETAMINOPHEN
  105. ALENDRONATE SODIUM [Concomitant]
     Active Substance: ALENDRONATE SODIUM
     Indication: Product used for unknown indication
     Route: 048
  106. ALENDRONATE SODIUM [Concomitant]
     Active Substance: ALENDRONATE SODIUM
     Route: 016
  107. ALENDRONATE SODIUM [Concomitant]
     Active Substance: ALENDRONATE SODIUM
  108. PANTOPRAZOLE SODIUM ANHYDROUS [Concomitant]
     Active Substance: PANTOPRAZOLE SODIUM ANHYDROUS
     Indication: Product used for unknown indication
  109. AZATHIOPRINE [Concomitant]
     Active Substance: AZATHIOPRINE
     Indication: Product used for unknown indication
  110. AZATHIOPRINE [Concomitant]
     Active Substance: AZATHIOPRINE
  111. BIOFLAVONOIDS [Concomitant]
     Active Substance: BIOFLAVONOIDS
     Indication: Product used for unknown indication
  112. CALCIUM [Concomitant]
     Active Substance: CALCIUM
     Indication: Product used for unknown indication
  113. CALCIUM CARBONATE [Concomitant]
     Active Substance: CALCIUM CARBONATE
     Indication: Product used for unknown indication
     Route: 016
  114. CALCIUM CITRATE [Concomitant]
     Active Substance: CALCIUM CITRATE
     Indication: Product used for unknown indication
  115. CALCIUM GLUBIONATE [Concomitant]
     Active Substance: CALCIUM GLUBIONATE
     Indication: Product used for unknown indication
     Route: 009
  116. CELECOXIB [Concomitant]
     Active Substance: CELECOXIB
     Indication: Product used for unknown indication
  117. CELECOXIB [Concomitant]
     Active Substance: CELECOXIB
     Route: 048
  118. CELECOXIB [Concomitant]
     Active Substance: CELECOXIB
     Route: 058
  119. CELECOXIB [Concomitant]
     Active Substance: CELECOXIB
     Route: 048
  120. CERTOLIZUMAB PEGOL [Concomitant]
     Active Substance: CERTOLIZUMAB PEGOL
     Indication: Product used for unknown indication
     Route: 058
  121. CETIRIZINE [Concomitant]
     Active Substance: CETIRIZINE HYDROCHLORIDE
     Indication: Product used for unknown indication
     Route: 048
  122. CETIRIZINE [Concomitant]
     Active Substance: CETIRIZINE HYDROCHLORIDE
  123. CETIRIZINE [Concomitant]
     Active Substance: CETIRIZINE HYDROCHLORIDE
     Route: 048
  124. CETIRIZINE [Concomitant]
     Active Substance: CETIRIZINE HYDROCHLORIDE
  125. CHLORHEXIDINE [Concomitant]
     Active Substance: CHLORHEXIDINE
     Indication: Product used for unknown indication
     Route: 002
  126. CHLORHEXIDINE GLUCONATE\ISOPROPYL ALCOHOL [Concomitant]
     Active Substance: CHLORHEXIDINE GLUCONATE\ISOPROPYL ALCOHOL
     Indication: Product used for unknown indication
  127. CIMZIA [Concomitant]
     Active Substance: CERTOLIZUMAB PEGOL
     Indication: Product used for unknown indication
     Route: 058
  128. CIMZIA [Concomitant]
     Active Substance: CERTOLIZUMAB PEGOL
     Route: 058
  129. CIMZIA [Concomitant]
     Active Substance: CERTOLIZUMAB PEGOL
     Route: 058
  130. CLONIDINE HYDROCHLORIDE [Concomitant]
     Active Substance: CLONIDINE HYDROCHLORIDE
     Indication: Product used for unknown indication
  131. CORTISONE ACETATE [Concomitant]
     Active Substance: CORTISONE ACETATE
     Indication: Product used for unknown indication
  132. CORTISONE ACETATE [Concomitant]
     Active Substance: CORTISONE ACETATE
  133. DESOXIMETASONE [Concomitant]
     Active Substance: DESOXIMETASONE
     Indication: Product used for unknown indication
     Route: 048
  134. DESOXIMETASONE [Concomitant]
     Active Substance: DESOXIMETASONE
  135. DESOXIMETASONE [Concomitant]
     Active Substance: DESOXIMETASONE
     Route: 048
  136. DESOXIMETASONE [Concomitant]
     Active Substance: DESOXIMETASONE
  137. DICLOFENAC DIETHYLAMINE [Concomitant]
     Active Substance: DICLOFENAC DIETHYLAMINE
     Indication: Product used for unknown indication
  138. DICLOFENAC DIETHYLAMINE [Concomitant]
     Active Substance: DICLOFENAC DIETHYLAMINE
  139. DICLOFENAC POTASSIUM [Concomitant]
     Active Substance: DICLOFENAC POTASSIUM
     Indication: Product used for unknown indication
  140. DICLOFENAC SODIUM [Concomitant]
     Active Substance: DICLOFENAC SODIUM
     Indication: Product used for unknown indication
  141. DICLOFENAC SODIUM [Concomitant]
     Active Substance: DICLOFENAC SODIUM
  142. DICLOFENAC SODIUM [Concomitant]
     Active Substance: DICLOFENAC SODIUM
     Route: 058
  143. DICLOFENAC SODIUM [Concomitant]
     Active Substance: DICLOFENAC SODIUM
  144. DICLOFENAC SODIUM [Concomitant]
     Active Substance: DICLOFENAC SODIUM
  145. DICLOFENAC SODIUM [Concomitant]
     Active Substance: DICLOFENAC SODIUM
  146. DICLOFENAC SODIUM [Concomitant]
     Active Substance: DICLOFENAC SODIUM
  147. DICLOFENAC SODIUM [Concomitant]
     Active Substance: DICLOFENAC SODIUM
  148. DICLOFENAC SODIUM [Concomitant]
     Active Substance: DICLOFENAC SODIUM
     Route: 058
  149. DICLOFENAC SODIUM [Concomitant]
     Active Substance: DICLOFENAC SODIUM
  150. DILTIAZEM HYDROCHLORIDE [Concomitant]
     Active Substance: DILTIAZEM HYDROCHLORIDE
     Indication: Product used for unknown indication
  151. DILTIAZEM HYDROCHLORIDE [Concomitant]
     Active Substance: DILTIAZEM HYDROCHLORIDE
     Route: 042
  152. DOXYCYCLINE HYCLATE [Concomitant]
     Active Substance: DOXYCYCLINE HYCLATE
     Indication: Product used for unknown indication
  153. ENTYVIO [Concomitant]
     Active Substance: VEDOLIZUMAB
     Indication: Product used for unknown indication
  154. ERELZI [Concomitant]
     Active Substance: ETANERCEPT-SZZS
     Indication: Product used for unknown indication
     Route: 058
  155. ERELZI [Concomitant]
     Active Substance: ETANERCEPT-SZZS
     Route: 058
  156. FOLIC ACID [Concomitant]
     Active Substance: FOLIC ACID
     Indication: Product used for unknown indication
  157. FOLIC ACID [Concomitant]
     Active Substance: FOLIC ACID
  158. FOLIC ACID [Concomitant]
     Active Substance: FOLIC ACID
  159. FOLIC ACID [Concomitant]
     Active Substance: FOLIC ACID
  160. FOLIC ACID [Concomitant]
     Active Substance: FOLIC ACID
  161. FOLIC ACID [Concomitant]
     Active Substance: FOLIC ACID
  162. FOLIC ACID [Concomitant]
     Active Substance: FOLIC ACID
     Route: 048
  163. FOLIC ACID [Concomitant]
     Active Substance: FOLIC ACID
     Route: 048
  164. FOLIC ACID [Concomitant]
     Active Substance: FOLIC ACID
  165. FRAMYCETIN SULFATE [Concomitant]
     Active Substance: FRAMYCETIN SULFATE
     Indication: Product used for unknown indication
  166. GOLIMUMAB [Concomitant]
     Active Substance: GOLIMUMAB
     Indication: Product used for unknown indication
  167. GRAMCIDIN [Concomitant]
     Indication: Product used for unknown indication
  168. HUMIRA [Concomitant]
     Active Substance: ADALIMUMAB
     Indication: Product used for unknown indication
     Dosage: SOLUTION SUBCUTANEOUS
     Route: 058
  169. HUMIRA [Concomitant]
     Active Substance: ADALIMUMAB
     Route: 058
  170. HUMIRA [Concomitant]
     Active Substance: ADALIMUMAB
     Route: 058
  171. HUMIRA [Concomitant]
     Active Substance: ADALIMUMAB
     Route: 058
  172. HYDROXYCHLOROQUINE [Concomitant]
     Active Substance: HYDROXYCHLOROQUINE
     Indication: Product used for unknown indication
     Route: 048
  173. HYDROXYCHLOROQUINE [Concomitant]
     Active Substance: HYDROXYCHLOROQUINE
     Route: 048
  174. HYDROXYCHLOROQUINE [Concomitant]
     Active Substance: HYDROXYCHLOROQUINE
     Route: 048
  175. HYDROXYCHLOROQUINE SULFATE [Concomitant]
     Active Substance: HYDROXYCHLOROQUINE SULFATE
     Indication: Product used for unknown indication
  176. HYDROXYCHLOROQUINE SULFATE [Concomitant]
     Active Substance: HYDROXYCHLOROQUINE SULFATE
  177. HYDROXYCHLOROQUINE SULFATE [Concomitant]
     Active Substance: HYDROXYCHLOROQUINE SULFATE
     Route: 048
  178. HYDROXYCHLOROQUINE SULFATE [Concomitant]
     Active Substance: HYDROXYCHLOROQUINE SULFATE
  179. HYDROXYCHLOROQUINE SULFATE [Concomitant]
     Active Substance: HYDROXYCHLOROQUINE SULFATE
     Route: 048
  180. ISOPROPYL ALCOHOL [Concomitant]
     Active Substance: ISOPROPYL ALCOHOL
     Indication: Product used for unknown indication
     Dosage: LIQUID TOPICAL
     Route: 048
  181. LYRICA [Concomitant]
     Active Substance: PREGABALIN
     Indication: Product used for unknown indication
  182. MESALAMINE [Concomitant]
     Active Substance: MESALAMINE
     Indication: Product used for unknown indication
  183. METHOTREXATE [Concomitant]
     Active Substance: METHOTREXATE
     Indication: Product used for unknown indication
     Route: 058
  184. MORPHINE SULFATE [Concomitant]
     Active Substance: MORPHINE SULFATE
     Indication: Product used for unknown indication
  185. MYCOPHENOLATE MOFETIL [Concomitant]
     Active Substance: MYCOPHENOLATE MOFETIL
     Indication: Product used for unknown indication
  186. NAPROXEN SODIUM [Concomitant]
     Active Substance: NAPROXEN SODIUM
     Indication: Product used for unknown indication
  187. NITROFURAZONE [Concomitant]
     Active Substance: NITROFURAZONE
     Indication: Product used for unknown indication
     Route: 048
  188. NITROFURAZONE [Concomitant]
     Active Substance: NITROFURAZONE
     Route: 048
  189. SULFISOMIDINE [Concomitant]
     Active Substance: SULFISOMIDINE
     Indication: Product used for unknown indication
  190. SODIUM FLUORIDE [Concomitant]
     Active Substance: SODIUM FLUORIDE
     Indication: Product used for unknown indication
  191. PREGABALIN [Concomitant]
     Active Substance: PREGABALIN
     Indication: Product used for unknown indication
  192. USTEKINUMAB [Concomitant]
     Active Substance: USTEKINUMAB
     Indication: Product used for unknown indication
     Route: 042

REACTIONS (61)
  - Irritable bowel syndrome [Unknown]
  - Joint dislocation [Unknown]
  - Joint range of motion decreased [Unknown]
  - Joint stiffness [Unknown]
  - Joint swelling [Unknown]
  - Laryngitis [Unknown]
  - Liver function test increased [Unknown]
  - Liver injury [Unknown]
  - Lower limb fracture [Unknown]
  - Lupus vulgaris [Unknown]
  - Lupus-like syndrome [Unknown]
  - Memory impairment [Unknown]
  - Mobility decreased [Unknown]
  - Muscle injury [Unknown]
  - Muscular weakness [Unknown]
  - Musculoskeletal stiffness [Unknown]
  - Nasopharyngitis [Unknown]
  - Nausea [Unknown]
  - Oedema [Unknown]
  - Oedema peripheral [Unknown]
  - Osteoarthritis [Unknown]
  - Osteoporosis [Unknown]
  - Pain [Unknown]
  - Pain in extremity [Unknown]
  - Pemphigus [Unknown]
  - Pericarditis [Unknown]
  - Peripheral swelling [Unknown]
  - Pneumonia [Unknown]
  - Prescribed overdose [Unknown]
  - Prescribed underdose [Unknown]
  - Pruritus [Unknown]
  - Psoriasis [Unknown]
  - Psoriatic arthropathy [Unknown]
  - Pulmonary fibrosis [Unknown]
  - Pyrexia [Unknown]
  - Rash [Unknown]
  - Red blood cell sedimentation rate increased [Unknown]
  - Retinitis [Unknown]
  - Rheumatic fever [Unknown]
  - Rheumatoid arthritis [Unknown]
  - Rheumatoid factor positive [Unknown]
  - Road traffic accident [Unknown]
  - Sciatica [Unknown]
  - Seronegative arthritis [Unknown]
  - Sinusitis [Unknown]
  - Swollen joint count increased [Unknown]
  - Synovitis [Unknown]
  - Systemic lupus erythematosus [Unknown]
  - Tachycardia [Unknown]
  - Type 2 diabetes mellitus [Unknown]
  - Upper respiratory tract infection [Unknown]
  - Urticaria [Unknown]
  - Visual impairment [Unknown]
  - Vomiting [Unknown]
  - Weight decreased [Unknown]
  - Weight increased [Unknown]
  - Wheezing [Unknown]
  - Wound [Unknown]
  - Wound infection [Unknown]
  - Intentional product use issue [Unknown]
  - Off label use [Unknown]
